FAERS Safety Report 6263209-0 (Version None)
Quarter: 2009Q3

REPORT INFORMATION
  Report Type: 
  Country: None (occurrence: None)
  Receive Date: 20090710
  Receipt Date: 20090708
  Transmission Date: 20100115
  Serious: Yes (Other)
  Sender: FDA-Public Use
  Company Number: US-BRISTOL-MYERS SQUIBB COMPANY-14694848

PATIENT
  Age: 38 Year
  Sex: Male

DRUGS (4)
  1. ABILIFY [Suspect]
     Indication: PSYCHOTIC DISORDER
     Route: 048
  2. BUPROPION HCL [Interacting]
     Indication: EX-TOBACCO USER
     Dosage: BUPROPION HCL TAB-CONTROLLED RELEASE. APPROX 4 TIMES
     Route: 048
     Dates: end: 20080101
  3. BUPROPION HCL [Interacting]
     Dosage: BUPROPION HCL TAB-CONTROLLED RELEASE. APPROX 4 TIMES
     Route: 048
     Dates: end: 20080101
  4. LAMICTAL [Concomitant]

REACTIONS (3)
  - DRUG INTERACTION [None]
  - ILL-DEFINED DISORDER [None]
  - PSYCHOTIC DISORDER [None]
